FAERS Safety Report 11844555 (Version 2)
Quarter: 2015Q4

REPORT INFORMATION
  Report Type: Spontaneous
  Country: US (occurrence: US)
  Receive Date: 20151217
  Receipt Date: 20151224
  Transmission Date: 20160305
  Serious: Yes (Hospitalization)
  Sender: FDA-Public Use
  Company Number: US-APOTEX-2015AP015256

PATIENT
  Age: 5 Decade
  Sex: Male

DRUGS (5)
  1. BOTULINUM TOXIN [Concomitant]
     Active Substance: BOTULINUM TOXIN TYPE A
     Indication: PAIN
     Dosage: UNK
     Route: 065
  2. HYDROMORPHONE [Suspect]
     Active Substance: HYDROMORPHONE
     Indication: IMPAIRED GASTRIC EMPTYING
     Dosage: UNK
     Route: 048
  3. FENTANYL. [Suspect]
     Active Substance: FENTANYL
     Indication: IMPAIRED GASTRIC EMPTYING
     Dosage: UNK
     Route: 062
  4. FENTANYL. [Suspect]
     Active Substance: FENTANYL
     Dosage: 100 ?G, Q.H.
     Route: 062
  5. HYDROMORPHONE [Suspect]
     Active Substance: HYDROMORPHONE
     Dosage: 2 MG, Q.4H.
     Route: 048

REACTIONS (2)
  - Narcotic bowel syndrome [Recovered/Resolved]
  - Drug withdrawal syndrome [Recovered/Resolved]
